FAERS Safety Report 21186819 (Version 1)
Quarter: 2022Q3

REPORT INFORMATION
  Report Type: Spontaneous
  Country: US (occurrence: None)
  Receive Date: 20220808
  Receipt Date: 20220808
  Transmission Date: 20221026
  Serious: Yes (Death)
  Sender: FDA-Public Use
  Company Number: None

PATIENT
  Age: 80 Year
  Sex: Female

DRUGS (1)
  1. RETACRIT [Suspect]
     Active Substance: EPOETIN ALFA-EPBX
     Dosage: OTHER STRENGTH : 20,000U/ML;?OTHER QUANTITY : 8000 UNITS;?OTHER FREQUENCY : UNKNOWN;?
     Route: 058
     Dates: start: 201910

REACTIONS (1)
  - Death [None]

NARRATIVE: CASE EVENT DATE: 20220808
